FAERS Safety Report 9390993 (Version 1)
Quarter: 2013Q3

REPORT INFORMATION
  Report Type: Spontaneous
  Country: DE (occurrence: None)
  Receive Date: 20130705
  Receipt Date: 20130705
  Transmission Date: 20140515
  Serious: Yes (Death, Life-Threatening, Hospitalization, Other)
  Sender: FDA-Public Use
  Company Number: DE-023343

PATIENT
  Age: 81 Year
  Sex: Male

DRUGS (11)
  1. CHLORAMBUCIL [Suspect]
     Indication: CHRONIC LYMPHOCYTIC LEUKAEMIA
     Dosage: EVERY TWO WEEKS (32 MILLIGRAM, 1 IN 2 WEEKS), ORAL
     Route: 048
     Dates: start: 20101125
  2. STUDY MEDICATION [Suspect]
     Indication: CHRONIC LYMPHOCYTIC LEUKAEMIA
     Dosage: CYCLIC (ON DAY 1, 8, 15 OF 28 DAY CYCLE) (1000 MILLIGRAM), INTRAVENOUS (NOT OTHERWISE SPECIFIED)
     Route: 042
     Dates: start: 20101125
  3. ARCOXIA [Concomitant]
  4. KATADOLON [Concomitant]
  5. PANTOZOL [Concomitant]
  6. NOVAMINSULFON [Concomitant]
  7. ENOXAPARIN [Concomitant]
  8. ALLOPURINOL [Concomitant]
  9. FOLINIC ACID [Concomitant]
  10. COTRIM FORTE [Concomitant]
  11. TOREM [Concomitant]

REACTIONS (3)
  - Fall [None]
  - Central nervous system haemorrhage [None]
  - Thrombocytopenia [None]
